FAERS Safety Report 12643692 (Version 1)
Quarter: 2016Q3

REPORT INFORMATION
  Report Type: Report from Study
  Country: NL (occurrence: NL)
  Receive Date: 20160811
  Receipt Date: 20160811
  Transmission Date: 20161109
  Serious: Yes (Hospitalization)
  Sender: FDA-Public Use
  Company Number: NL-AMGEN-NLDSL2016102045

PATIENT
  Sex: Female

DRUGS (1)
  1. ARANESP [Suspect]
     Active Substance: DARBEPOETIN ALFA
     Indication: NEPHROGENIC ANAEMIA
     Dosage: 40 MCG(100MCG/ML 0.4ML), Q2WK
     Route: 058

REACTIONS (4)
  - Dyspnoea [Unknown]
  - Pyrexia [Unknown]
  - Abdominal pain [Unknown]
  - Nausea [Unknown]
